FAERS Safety Report 16965892 (Version 2)
Quarter: 2020Q1

REPORT INFORMATION
  Report Type: Spontaneous
  Country: US (occurrence: US)
  Receive Date: 20191028
  Receipt Date: 20200109
  Transmission Date: 20200409
  Serious: No
  Sender: FDA-Public Use
  Company Number: US-PFIZER INC-2019460405

PATIENT
  Age: 46 Year
  Sex: Female
  Weight: 98.88 kg

DRUGS (6)
  1. METFORMIN [Concomitant]
     Active Substance: METFORMIN HYDROCHLORIDE
     Indication: TYPE 1 DIABETES MELLITUS
     Dosage: 500 MG, 2X/DAY
     Dates: start: 2007
  2. CLONAZEPAM. [Concomitant]
     Active Substance: CLONAZEPAM
     Indication: DEPRESSION
  3. CLONAZEPAM. [Concomitant]
     Active Substance: CLONAZEPAM
     Indication: ANXIETY
     Dosage: 1 MG, 2X/DAY
     Dates: start: 200201
  4. LYRICA [Suspect]
     Active Substance: PREGABALIN
     Indication: OSTEOARTHRITIS
  5. LYRICA [Suspect]
     Active Substance: PREGABALIN
     Indication: FIBROMYALGIA
     Dosage: 75 UG, 1X/DAY ( ONCE A DAY BY MOUTH AT NIGHT BEFORE BED )
     Route: 048
     Dates: start: 2002, end: 201001
  6. ASPIRIN [ACETYLSALICYLIC ACID] [Concomitant]
     Active Substance: ASPIRIN
     Dosage: 81 MG, 1X/DAY
     Dates: start: 2007

REACTIONS (13)
  - Arterial occlusive disease [Unknown]
  - Weight increased [Not Recovered/Not Resolved]
  - Arthropathy [Unknown]
  - Joint dislocation [Not Recovered/Not Resolved]
  - Intervertebral disc degeneration [Unknown]
  - Drug ineffective [Unknown]
  - Body height decreased [Unknown]
  - Back disorder [Not Recovered/Not Resolved]
  - Pain [Unknown]
  - General physical condition abnormal [Not Recovered/Not Resolved]
  - Aortic arteriosclerosis [Unknown]
  - Back pain [Unknown]
  - Sciatica [Unknown]

NARRATIVE: CASE EVENT DATE: 2007
